FAERS Safety Report 8798557 (Version 1)
Quarter: 2012Q4

REPORT INFORMATION
  Report Type: 
  Country: US (occurrence: US)
  Receive Date: 20120917
  Receipt Date: 20120917
  Transmission Date: 20130627
  Serious: Yes (Hospitalization)
  Sender: FDA-Public Use
  Company Number: US-PFIZER INC-2012224276

PATIENT
  Age: 45 Year
  Sex: Female

DRUGS (4)
  1. OXALIPLATIN [Suspect]
     Indication: COLORECTAL CANCER STAGE III
     Dosage: UNK
  2. FLUOROURACIL [Concomitant]
     Indication: COLORECTAL CANCER STAGE III
     Dosage: UNK
  3. LEUCOVORIN [Concomitant]
     Indication: COLORECTAL CANCER STAGE III
     Dosage: UNK
  4. BEVACIZUMAB [Concomitant]
     Indication: COLORECTAL CANCER STAGE III
     Dosage: UNK

REACTIONS (3)
  - Liver disorder [Recovered/Resolved]
  - Portal hypertension [Recovered/Resolved]
  - Bleeding varicose vein [Recovered/Resolved]
